FAERS Safety Report 4732795-1 (Version None)
Quarter: 2005Q3

REPORT INFORMATION
  Report Type: 
  Country: None (occurrence: None)
  Receive Date: 20050801
  Receipt Date: 20050719
  Transmission Date: 20060218
  Serious: Yes (Death, Hospitalization, Other)
  Sender: FDA-Public Use
  Company Number: 082-20785-05070410

PATIENT
  Age: 58 Year
  Sex: Male

DRUGS (2)
  1. THALIDOMIDE - PHARMION (THALIDOMIDE) (UNKNOWN) [Suspect]
     Indication: MULTIPLE MYELOMA
     Dosage: 200 MG INITIAL DOSE, THEN  INCREASED TO 600 MG, QD,
  2. DEXAMETHASONE [Concomitant]

REACTIONS (9)
  - CENTRAL NERVOUS SYSTEM MASS [None]
  - COORDINATION ABNORMAL [None]
  - HAEMODIALYSIS [None]
  - IIIRD NERVE PARALYSIS [None]
  - MENINGEAL DISORDER [None]
  - MULTIPLE MYELOMA [None]
  - PLASMACYTOMA [None]
  - REFUSAL OF TREATMENT BY PATIENT [None]
  - RENAL IMPAIRMENT [None]
